FAERS Safety Report 12254973 (Version 1)
Quarter: 2016Q2

REPORT INFORMATION
  Report Type: Spontaneous
  Country: US (occurrence: US)
  Receive Date: 20160411
  Receipt Date: 20160411
  Transmission Date: 20160815
  Serious: No
  Sender: FDA-Public Use
  Company Number: US-PFIZER INC-2016177802

PATIENT
  Sex: Female

DRUGS (3)
  1. VENLAFAXINE HCL [Suspect]
     Active Substance: VENLAFAXINE HYDROCHLORIDE
     Indication: MULTIPLE CHEMICAL SENSITIVITY
     Dosage: 25 MG, PILLS AT NIGHT
  2. EFFEXOR XR [Concomitant]
     Active Substance: VENLAFAXINE HYDROCHLORIDE
     Indication: MULTIPLE CHEMICAL SENSITIVITY
     Dosage: 37.5 MG, ONCE IN THE MORNING
     Route: 048
  3. EFFEXOR XR [Concomitant]
     Active Substance: VENLAFAXINE HYDROCHLORIDE
     Dosage: 37.5 MG, TWICE PER DAY
     Route: 048

REACTIONS (2)
  - Disturbance in attention [Unknown]
  - Drug ineffective for unapproved indication [Unknown]
